FAERS Safety Report 5748382-2 (Version None)
Quarter: 2008Q2

REPORT INFORMATION
  Report Type: 
  Country: None (occurrence: None)
  Receive Date: 20080523
  Receipt Date: 20080514
  Transmission Date: 20081010
  Serious: Yes (Disabling, Other)
  Sender: FDA-Public Use
  Company Number: BR-PFIZER INC-2008034676

PATIENT
  Sex: Female
  Weight: 78 kg

DRUGS (2)
  1. DEPO-PROVERA SUSPENSION/INJ [Suspect]
     Indication: OFF LABEL USE
     Route: 030
     Dates: start: 20080301, end: 20080301
  2. DEPO-PROVERA SUSPENSION/INJ [Suspect]
     Indication: MENSTRUAL DISCOMFORT

REACTIONS (13)
  - ASTHENIA [None]
  - BACK PAIN [None]
  - IRRITABILITY [None]
  - MENOMETRORRHAGIA [None]
  - MIGRAINE [None]
  - NAUSEA [None]
  - NERVOUSNESS [None]
  - PAIN IN EXTREMITY [None]
  - PELVIC PAIN [None]
  - POLLAKIURIA [None]
  - STARVATION [None]
  - SYNCOPE [None]
  - THIRST [None]
